FAERS Safety Report 18640390 (Version 3)
Quarter: 2021Q1

REPORT INFORMATION
  Report Type: Spontaneous
  Country: US (occurrence: US)
  Receive Date: 20201221
  Receipt Date: 20210122
  Transmission Date: 20210419
  Serious: No
  Sender: FDA-Public Use
  Company Number: US-SA-2020SA363750

PATIENT
  Age: 75 Year
  Sex: Female

DRUGS (2)
  1. DUPIXENT [Suspect]
     Active Substance: DUPILUMAB
     Indication: ASTHMA
     Dosage: 300 MG, QOW
     Route: 058
     Dates: start: 202012, end: 20210111
  2. DUPIXENT [Suspect]
     Active Substance: DUPILUMAB
     Indication: NASAL POLYPS

REACTIONS (8)
  - Eye pain [Unknown]
  - Abdominal discomfort [Unknown]
  - Headache [Unknown]
  - Wheezing [Unknown]
  - Dry eye [Unknown]
  - Eye disorder [Unknown]
  - Cough [Unknown]
  - Conjunctivitis [Unknown]

NARRATIVE: CASE EVENT DATE: 202012
